FAERS Safety Report 18086668 (Version 1)
Quarter: 2020Q3

REPORT INFORMATION
  Report Type: Spontaneous
  Country: US (occurrence: US)
  Receive Date: 20200728
  Receipt Date: 20200728
  Transmission Date: 20201103
  Serious: Yes (Life-Threatening, Hospitalization, Disabling)
  Sender: FDA-Public Use
  Company Number: None

PATIENT
  Age: 53 Year
  Sex: Female
  Weight: 60.75 kg

DRUGS (1)
  1. BLUMEN CLEAR ADVANCED HAND SANITIZER [Suspect]
     Active Substance: ALCOHOL
     Indication: COVID-19
     Dosage: ?          OTHER FREQUENCY:5X/DAY;?
     Route: 061
     Dates: start: 20200201, end: 20200725

REACTIONS (8)
  - Vision blurred [None]
  - Fall [None]
  - Loss of consciousness [None]
  - Toxicologic test [None]
  - Seizure [None]
  - Malaise [None]
  - Visual impairment [None]
  - Confusional state [None]

NARRATIVE: CASE EVENT DATE: 20200625
